FAERS Safety Report 18899187 (Version 1)
Quarter: 2021Q1

REPORT INFORMATION
  Report Type: Spontaneous
  Country: FR (occurrence: FR)
  Receive Date: 20210216
  Receipt Date: 20210216
  Transmission Date: 20210420
  Serious: Yes (Death)
  Sender: FDA-Public Use
  Company Number: FR-STRIDES ARCOLAB LIMITED-2021SP002003

PATIENT

DRUGS (3)
  1. IBUPROFEN. [Suspect]
     Active Substance: IBUPROFEN
     Indication: PATENT DUCTUS ARTERIOSUS
     Dosage: 10 MILLIGRAM/KILOGRAM ON DAY 1
  2. IBUPROFEN. [Suspect]
     Active Substance: IBUPROFEN
     Dosage: 5 MILLIGRAM/KILOGRAM ON DAY 3
  3. IBUPROFEN. [Suspect]
     Active Substance: IBUPROFEN
     Dosage: 5 MILLIGRAM/KILOGRAM ON DAY 2

REACTIONS (1)
  - Death [Fatal]
